FAERS Safety Report 19440804 (Version 1)
Quarter: 2021Q2

REPORT INFORMATION
  Report Type: Spontaneous
  Country: RU (occurrence: RU)
  Receive Date: 20210621
  Receipt Date: 20210621
  Transmission Date: 20210717
  Serious: Yes (Other)
  Sender: FDA-Public Use
  Company Number: RU-ROCHE-2846607

PATIENT
  Age: 62 Year
  Sex: Female

DRUGS (2)
  1. BEVACIZUMAB. [Suspect]
     Active Substance: BEVACIZUMAB
     Indication: PRODUCT USED FOR UNKNOWN INDICATION
     Route: 042
  2. ATEZOLIZUMAB. [Suspect]
     Active Substance: ATEZOLIZUMAB
     Indication: PRODUCT USED FOR UNKNOWN INDICATION
     Route: 041

REACTIONS (6)
  - Venous thrombosis limb [Unknown]
  - Hydrothorax [Unknown]
  - Haematemesis [Unknown]
  - Varicose vein [Unknown]
  - Dyspnoea [Unknown]
  - Varices oesophageal [Unknown]

NARRATIVE: CASE EVENT DATE: 20200829
